FAERS Safety Report 23460857 (Version 1)
Quarter: 2024Q1

REPORT INFORMATION
  Report Type: Report from Study
  Country: CO (occurrence: CO)
  Receive Date: 20240131
  Receipt Date: 20240131
  Transmission Date: 20240410
  Serious: Yes (Other)
  Sender: FDA-Public Use
  Company Number: CO-002147023-NVSC2024CO021487

PATIENT
  Age: 33 Year
  Sex: Female
  Weight: 103 kg

DRUGS (1)
  1. COSENTYX [Suspect]
     Active Substance: SECUKINUMAB
     Indication: Psoriasis
     Dosage: 300 MG, QMO
     Route: 058
     Dates: start: 20170816

REACTIONS (3)
  - Lower respiratory tract infection [Not Recovered/Not Resolved]
  - Influenza [Not Recovered/Not Resolved]
  - Pulmonary congestion [Not Recovered/Not Resolved]

NARRATIVE: CASE EVENT DATE: 20240127
